FAERS Safety Report 5853323-3 (Version None)
Quarter: 2008Q3

REPORT INFORMATION
  Report Type: 
  Country: None (occurrence: None)
  Receive Date: 20080821
  Receipt Date: 20080811
  Transmission Date: 20090109
  Serious: Yes (Death)
  Sender: FDA-Public Use
  Company Number: JP-ABBOTT-08P-087-0471641-00

PATIENT
  Age: 82 Year
  Sex: Male

DRUGS (9)
  1. LEUPROLIDE ACETATE [Suspect]
     Indication: PROSTATE CANCER STAGE II
     Route: 058
     Dates: start: 20060719, end: 20070117
  2. BICALUTAMIDE [Concomitant]
     Indication: PROSTATE CANCER STAGE II
     Route: 048
     Dates: start: 20060310, end: 20070512
  3. TAMSULOSIN HCL [Concomitant]
     Indication: DYSURIA
     Route: 048
     Dates: start: 20060310
  4. PROPIVERINE HYDROCHLORIDE [Concomitant]
     Indication: DYSURIA
     Route: 048
     Dates: start: 20060330
  5. SINEMET [Concomitant]
     Indication: PARKINSON'S DISEASE
     Route: 048
  6. CABERGOLINE [Concomitant]
     Indication: PARKINSON'S DISEASE
     Route: 048
  7. DONEPEZIL HCL [Concomitant]
     Indication: PARKINSON'S DISEASE
     Route: 048
     Dates: start: 20060719, end: 20070518
  8. DONEPEZIL HCL [Concomitant]
     Route: 048
     Dates: start: 20070519
  9. MOSAPRIDE CITRATE [Concomitant]
     Indication: GASTROENTERITIS
     Route: 048

REACTIONS (1)
  - LUNG NEOPLASM MALIGNANT [None]
